FAERS Safety Report 24982818 (Version 2)
Quarter: 2025Q1

REPORT INFORMATION
  Report Type: Report from Study
  Country: US (occurrence: US)
  Receive Date: 20250218
  Receipt Date: 20250226
  Transmission Date: 20250409
  Serious: Yes (Other)
  Sender: IDORSIA PHARMACEUTICALS
  Company Number: US-IDORSIA-009342-2025-US

PATIENT
  Age: 59 Year
  Sex: Female

DRUGS (1)
  1. TRYVIO [Suspect]
     Active Substance: APROCITENTAN
     Indication: Essential hypertension
     Dosage: 12.5 MG, QD
     Route: 048
     Dates: start: 20250106

REACTIONS (1)
  - Breast cancer [Not Recovered/Not Resolved]

NARRATIVE: CASE EVENT DATE: 20250101
